FAERS Safety Report 20759009 (Version 1)
Quarter: 2022Q2

REPORT INFORMATION
  Report Type: Report from Study
  Country: US (occurrence: US)
  Receive Date: 20220427
  Receipt Date: 20220427
  Transmission Date: 20220721
  Serious: Yes (Hospitalization, Other)
  Sender: FDA-Public Use
  Company Number: US-JCAR017-FOL-001-1141003-20220131-0001SG

PATIENT
  Age: 70 Year
  Sex: Female
  Weight: 67 kg

DRUGS (13)
  1. LISOCABTAGENE MARALEUCEL [Suspect]
     Active Substance: LISOCABTAGENE MARALEUCEL
     Indication: Follicular lymphoma
     Dosage: FREQUENCY TEXT: ONCE?100 10^6 CAR+ T CELLS X ONCE
     Route: 042
     Dates: start: 20220118, end: 20220118
  2. CYCLOPHOSPHAMIDE [Suspect]
     Active Substance: CYCLOPHOSPHAMIDE
     Indication: Follicular lymphoma
     Route: 065
  3. CYCLOPHOSPHAMIDE [Suspect]
     Active Substance: CYCLOPHOSPHAMIDE
     Dosage: FREQUENCY TEXT: ONCE?546 MG X ONCE
     Route: 042
     Dates: start: 20220112, end: 20220112
  4. CYCLOPHOSPHAMIDE [Suspect]
     Active Substance: CYCLOPHOSPHAMIDE
     Dosage: FREQUENCY TEXT: ONCE?546 MG X ONCE
     Route: 042
     Dates: start: 20220113, end: 20220113
  5. CYCLOPHOSPHAMIDE [Suspect]
     Active Substance: CYCLOPHOSPHAMIDE
     Dosage: FREQUENCY TEXT: ONCE?546 MG X ONCE
     Route: 042
     Dates: start: 20220114, end: 20220114
  6. FLUDARABINE [Suspect]
     Active Substance: FLUDARABINE PHOSPHATE
     Indication: Follicular lymphoma
     Route: 065
  7. FLUDARABINE [Suspect]
     Active Substance: FLUDARABINE PHOSPHATE
     Dosage: FREQUENCY TEXT: ONCE?43.68 MG X ONCE
     Route: 042
     Dates: start: 20220112, end: 20220112
  8. FLUDARABINE [Suspect]
     Active Substance: FLUDARABINE PHOSPHATE
     Dosage: FREQUENCY TEXT: ONCE?43.68 MG X ONCE
     Route: 042
     Dates: start: 20220113, end: 20220113
  9. FLUDARABINE [Suspect]
     Active Substance: FLUDARABINE PHOSPHATE
     Dosage: FREQUENCY TEXT: ONCE?32.76 MG X ONCE
     Route: 042
     Dates: start: 20220114, end: 20220114
  10. DEXAMETHASONE [Concomitant]
     Active Substance: DEXAMETHASONE
     Indication: Adverse event
     Dosage: 10 MG?FREQUENCY : ONCE
     Route: 042
     Dates: start: 20220130, end: 20220130
  11. FAMOTIDINE [Concomitant]
     Active Substance: FAMOTIDINE
     Indication: Prophylaxis
     Dosage: 20 MG
     Route: 048
     Dates: start: 20220130, end: 20220206
  12. FAMOTIDINE [Concomitant]
     Active Substance: FAMOTIDINE
     Dosage: 20 MG X 2 X 1 DAYS
     Route: 042
     Dates: start: 20220131
  13. LEVETIRACETAM [Concomitant]
     Active Substance: LEVETIRACETAM
     Indication: Prophylaxis
     Dosage: 1500 MG?FREQUENCY : ONCE
     Route: 042
     Dates: start: 20220130, end: 20220130

REACTIONS (1)
  - Neurotoxicity [Recovered/Resolved]

NARRATIVE: CASE EVENT DATE: 20220130
